FAERS Safety Report 21579949 (Version 1)
Quarter: 2022Q4

REPORT INFORMATION
  Report Type: Spontaneous
  Country: US (occurrence: US)
  Receive Date: 20221110
  Receipt Date: 20221110
  Transmission Date: 20230113
  Serious: Yes (Hospitalization)
  Sender: FDA-Public Use
  Company Number: US-BoehringerIngelheim-2022-BI-201030

PATIENT
  Sex: Female

DRUGS (3)
  1. COMBIVENT RESPIMAT [Suspect]
     Active Substance: ALBUTEROL SULFATE\IPRATROPIUM BROMIDE
     Indication: Chronic obstructive pulmonary disease
     Dosage: FORM OF ADMIN (INHALATION SPRAY)?INHALING 2 PUFFS OF COMBIVENT RESPIMAT IN THEMORNING AND OCCASIONAL
  2. ALBUTEROL [Concomitant]
     Active Substance: ALBUTEROL
     Indication: Product used for unknown indication
  3. BROVANA [Concomitant]
     Active Substance: ARFORMOTEROL TARTRATE
     Indication: Product used for unknown indication

REACTIONS (5)
  - Fall [Recovered/Resolved]
  - Skin laceration [Recovered/Resolved]
  - Dyspnoea [Recovering/Resolving]
  - Inappropriate schedule of product administration [Unknown]
  - Product prescribing error [Unknown]

NARRATIVE: CASE EVENT DATE: 20221001
